FAERS Safety Report 12628336 (Version 5)
Quarter: 2016Q4

REPORT INFORMATION
  Report Type: Report from Study
  Country: DE (occurrence: DE)
  Receive Date: 20160808
  Receipt Date: 20161003
  Transmission Date: 20170207
  Serious: Yes (Other)
  Sender: FDA-Public Use
  Company Number: DE-UCBSA-2016029580

PATIENT
  Sex: Male
  Weight: 110 kg

DRUGS (6)
  1. LUMINAL [Concomitant]
     Active Substance: PHENOBARBITAL SODIUM
     Indication: EPILEPSY
     Dosage: 100 MG, ONCE DAILY (QD)
     Route: 048
     Dates: start: 20160420
  2. BRIVARACETAM [Suspect]
     Active Substance: BRIVARACETAM
     Indication: EPILEPSY
     Dosage: 100 MG, 2X/DAY (BID)
     Route: 048
     Dates: start: 20160426, end: 20160731
  3. FRISIUM [Concomitant]
     Active Substance: CLOBAZAM
     Dosage: 10 MG, ONCE DAILY (QD)
     Route: 048
     Dates: start: 200607
  4. TIMONIL [Concomitant]
     Active Substance: CARBAMAZEPINE
     Indication: EPILEPSY
     Dosage: 600 MG, 3X/DAY (TID)
     Route: 048
     Dates: start: 20140115
  5. CITALOPRAM [Concomitant]
     Active Substance: CITALOPRAM HYDROBROMIDE
     Indication: LOSS OF LIBIDO
     Dosage: 30 MG, ONCE DAILY (QD)
     Route: 048
     Dates: start: 20090302
  6. FRISIUM [Concomitant]
     Active Substance: CLOBAZAM
     Indication: EPILEPSY
     Dosage: 5 MG, ONCE DAILY (QD)
     Route: 048
     Dates: start: 200607, end: 200607

REACTIONS (2)
  - Aggression [Recovered/Resolved]
  - Seizure [Recovered/Resolved]

NARRATIVE: CASE EVENT DATE: 20160509
